FAERS Safety Report 18958195 (Version 50)
Quarter: 2023Q2

REPORT INFORMATION
  Report Type: Spontaneous
  Country: GB (occurrence: GB)
  Receive Date: 20210302
  Receipt Date: 20230531
  Transmission Date: 20230722
  Serious: Yes (Hospitalization, Other)
  Sender: FDA-Public Use
  Company Number: GB-CUBIST PHARMACEUTICALS, INC.-2013CBST000199

PATIENT
  Age: 71 Year
  Sex: Female
  Weight: 57 kg

DRUGS (180)
  1. SIMVASTATIN [Suspect]
     Active Substance: SIMVASTATIN
     Indication: Infection
     Dosage: UNK
     Route: 048
  2. SIMVASTATIN [Suspect]
     Active Substance: SIMVASTATIN
     Indication: Atrial fibrillation
     Dosage: UNK
     Route: 048
  3. SIMVASTATIN [Suspect]
     Active Substance: SIMVASTATIN
     Dosage: UNK
     Route: 048
  4. SIMVASTATIN [Suspect]
     Active Substance: SIMVASTATIN
     Dosage: UNK
     Route: 048
  5. SIMVASTATIN [Suspect]
     Active Substance: SIMVASTATIN
     Dosage: UNK
     Route: 048
  6. CUBICIN [Suspect]
     Active Substance: DAPTOMYCIN
     Indication: Arthritis infective
     Dosage: 350 MG, ONCE A DAY POWDER FOR SOLUTION FOR INFUSION
     Route: 042
     Dates: start: 20130306, end: 20130310
  7. CUBICIN [Suspect]
     Active Substance: DAPTOMYCIN
     Indication: Joint injection
     Dosage: 350 MG, QD, POWDER FOR SOLUTION FOR INFUSION
     Route: 042
     Dates: start: 20130306, end: 20130310
  8. CUBICIN [Suspect]
     Active Substance: DAPTOMYCIN
     Indication: Infection
     Dosage: UNK, POWDER FOR SOLUTION FOR INFUSION
     Route: 042
  9. CUBICIN [Suspect]
     Active Substance: DAPTOMYCIN
     Indication: Atrial fibrillation
     Dosage: UNK
     Route: 041
  10. CUBICIN [Suspect]
     Active Substance: DAPTOMYCIN
     Indication: Arthritis infective
     Dosage: UNK
     Route: 048
  11. DAPTOMYCIN [Suspect]
     Active Substance: DAPTOMYCIN
     Indication: Infection
     Dosage: 350 MILLIGRAM, ONCE A DAY
     Route: 042
     Dates: start: 20130306, end: 20130310
  12. DAPTOMYCIN [Suspect]
     Active Substance: DAPTOMYCIN
     Indication: Atrial fibrillation
  13. DAPTOMYCIN [Suspect]
     Active Substance: DAPTOMYCIN
     Indication: Joint injection
  14. DAPTOMYCIN [Suspect]
     Active Substance: DAPTOMYCIN
     Indication: Arthritis infective
  15. DAPTOMYCIN [Suspect]
     Active Substance: DAPTOMYCIN
     Dosage: 350 MILLIGRAM, ONCE A DAY
     Route: 048
     Dates: start: 20130306, end: 20130310
  16. MOMETASONE FUROATE [Concomitant]
     Active Substance: MOMETASONE FUROATE
     Indication: Product used for unknown indication
     Dosage: UNK; ADDITIONAL INFO: ROUTE: 065, PKGID=UNKNOWN
     Route: 065
  17. MOMETASONE FUROATE [Concomitant]
     Active Substance: MOMETASONE FUROATE
     Dosage: UNK; ADDITIONAL INFO: ROUTE: 065, PKGID=UNKNOWN
     Route: 016
  18. MOMETASONE FUROATE [Concomitant]
     Active Substance: MOMETASONE FUROATE
     Dosage: UNK; ADDITIONAL INFO: ROUTE: 065, PKGID=UNKNOWN
     Route: 016
  19. MOMETASONE FUROATE [Concomitant]
     Active Substance: MOMETASONE FUROATE
     Dosage: UNK; ADDITIONAL INFO: ROUTE: 065
     Route: 065
  20. MOMETASONE FUROATE [Concomitant]
     Active Substance: MOMETASONE FUROATE
     Dosage: UNK; ADDITIONAL INFO: ROUTE: 065, PKGID=UNKNOWN
     Route: 016
  21. MOMETASONE FUROATE [Concomitant]
     Active Substance: MOMETASONE FUROATE
     Dosage: UNK; ADDITIONAL INFO: ROUTE: 065
     Route: 065
  22. MOMETASONE FUROATE [Concomitant]
     Active Substance: MOMETASONE FUROATE
     Dosage: UNK; ADDITIONAL INFO: ROUTE: 065
     Route: 065
  23. MOMETASONE FUROATE [Concomitant]
     Active Substance: MOMETASONE FUROATE
     Dosage: UNK (OCCLUSIVE)
     Route: 065
  24. MOMETASONE FUROATE [Concomitant]
     Active Substance: MOMETASONE FUROATE
     Dosage: ROUTE OF ADMINISTRATION ALSO REPORTED AS UNKNOWN (ADDITIONAL INFO: ADDITIONAL INFO: ROUTE: 065)
     Route: 016
  25. MOMETASONE FUROATE [Concomitant]
     Active Substance: MOMETASONE FUROATE
     Dosage: UNK
     Route: 065
  26. MORPHINE SULFATE [Concomitant]
     Active Substance: MORPHINE SULFATE
     Indication: Product used for unknown indication
     Dosage: UNK; ADDITIONAL INFO: ROUTE: 065
     Route: 065
  27. MORPHINE SULFATE [Concomitant]
     Active Substance: MORPHINE SULFATE
     Dosage: UNK
     Route: 065
  28. MORPHINE SULFATE [Concomitant]
     Active Substance: MORPHINE SULFATE
     Dosage: UNK
     Route: 065
  29. MORPHINE SULFATE [Concomitant]
     Active Substance: MORPHINE SULFATE
     Dosage: UNK
     Route: 065
  30. MORPHINE SULFATE [Concomitant]
     Active Substance: MORPHINE SULFATE
     Dosage: UNK
     Route: 065
  31. MORPHINE SULFATE [Concomitant]
     Active Substance: MORPHINE SULFATE
     Dosage: UNK
  32. ENOXAPARIN SODIUM [Concomitant]
     Active Substance: ENOXAPARIN SODIUM
     Indication: Product used for unknown indication
     Dosage: UNK
     Route: 065
  33. ENOXAPARIN SODIUM [Concomitant]
     Active Substance: ENOXAPARIN SODIUM
     Dosage: UNK (OCCLUSIVE)
     Route: 065
  34. ENOXAPARIN SODIUM [Concomitant]
     Active Substance: ENOXAPARIN SODIUM
     Dosage: UNK
     Route: 065
  35. ENOXAPARIN SODIUM [Concomitant]
     Active Substance: ENOXAPARIN SODIUM
     Dosage: UNK
     Route: 065
  36. ACETAMINOPHEN AND CODEINE [Concomitant]
     Active Substance: ACETAMINOPHEN\CODEINE PHOSPHATE
     Indication: Product used for unknown indication
     Dosage: UNK
     Route: 065
  37. ACETAMINOPHEN AND CODEINE [Concomitant]
     Active Substance: ACETAMINOPHEN\CODEINE PHOSPHATE
     Dosage: UNK
     Route: 065
  38. ACETAMINOPHEN AND CODEINE [Concomitant]
     Active Substance: ACETAMINOPHEN\CODEINE PHOSPHATE
     Dosage: 30/500 UNK
     Route: 065
  39. ONDANSETRON [Concomitant]
     Active Substance: ONDANSETRON
     Indication: Product used for unknown indication
     Dosage: UNK (ADDITIONAL INFO: ROUTE: 065)
     Route: 065
  40. ONDANSETRON [Concomitant]
     Active Substance: ONDANSETRON
     Dosage: UNK (ADDITIONAL INFO: ROUTE: 065)
     Route: 065
  41. ONDANSETRON [Concomitant]
     Active Substance: ONDANSETRON
     Dosage: UNK (ADDITIONAL INFO: ROUTE: 065)
     Route: 065
  42. ONDANSETRON [Concomitant]
     Active Substance: ONDANSETRON
     Dosage: UNK (ADDITIONAL INFO: ROUTE: 065)
     Route: 065
  43. ONDANSETRON [Concomitant]
     Active Substance: ONDANSETRON
     Dosage: UNK (ADDITIONAL INFO: ROUTE: 065)
     Route: 065
  44. ONDANSETRON [Concomitant]
     Active Substance: ONDANSETRON
     Dosage: UNK (OCCLUSIVE)
     Route: 065
  45. ONDANSETRON [Concomitant]
     Active Substance: ONDANSETRON
     Dosage: UNK (ADDITIONAL INFO: ROUTE: 065)
     Route: 065
  46. BENDROFLUMETHIAZIDE [Concomitant]
     Active Substance: BENDROFLUMETHIAZIDE
     Indication: Product used for unknown indication
     Dosage: UNK; ADDITIONAL INFO: ROUTE: 065
     Route: 065
  47. BENDROFLUMETHIAZIDE [Concomitant]
     Active Substance: BENDROFLUMETHIAZIDE
     Dosage: UNK; ADDITIONAL INFO: ROUTE: 065
     Route: 065
  48. BENDROFLUMETHIAZIDE [Concomitant]
     Active Substance: BENDROFLUMETHIAZIDE
     Dosage: UNK; ADDITIONAL INFO: ROUTE: 065
     Route: 065
  49. BENDROFLUMETHIAZIDE [Concomitant]
     Active Substance: BENDROFLUMETHIAZIDE
     Dosage: UNK; ADDITIONAL INFO: ROUTE: 065
     Route: 016
  50. BENDROFLUMETHIAZIDE [Concomitant]
     Active Substance: BENDROFLUMETHIAZIDE
     Dosage: UNK; ADDITIONAL INFO: ROUTE: 065
     Route: 065
  51. BENDROFLUMETHIAZIDE [Concomitant]
     Active Substance: BENDROFLUMETHIAZIDE
     Dosage: UNK; ADDITIONAL INFO: ROUTE: 065
     Route: 065
  52. BENDROFLUMETHIAZIDE [Concomitant]
     Active Substance: BENDROFLUMETHIAZIDE
     Dosage: UNK (OCCLUSIVE)
     Route: 065
  53. ASPIRIN [Concomitant]
     Active Substance: ASPIRIN
     Indication: Product used for unknown indication
     Dosage: UNK
     Route: 065
  54. ASPIRIN [Concomitant]
     Active Substance: ASPIRIN
     Dosage: UNK
     Route: 065
  55. ASPIRIN [Concomitant]
     Active Substance: ASPIRIN
     Dosage: UNK
     Route: 065
  56. ASPIRIN [Concomitant]
     Active Substance: ASPIRIN
     Dosage: UNK
     Route: 016
  57. OMEPRAZOLE [Concomitant]
     Active Substance: OMEPRAZOLE
     Indication: Product used for unknown indication
     Dosage: UNK (ADDITIONAL INFO: ROUTE: 065) (ADDITIONAL INFO: MOMETASONE FUROATE)
     Route: 065
  58. OMEPRAZOLE [Concomitant]
     Active Substance: OMEPRAZOLE
     Dosage: UNK (ADDITIONAL INFO: ROUTE: 065) (ADDITIONAL INFO: MOMETASONE FUROATE)
     Route: 065
  59. OMEPRAZOLE [Concomitant]
     Active Substance: OMEPRAZOLE
     Dosage: UNK (ADDITIONAL INFO: ROUTE: 065) (ADDITIONAL INFO: MOMETASONE FUROATE)
     Route: 065
  60. OMEPRAZOLE [Concomitant]
     Active Substance: OMEPRAZOLE
     Dosage: UNK (ADDITIONAL INFO: ROUTE: 065) (ADDITIONAL INFO: MOMETASONE FUROATE)
     Route: 065
  61. OMEPRAZOLE [Concomitant]
     Active Substance: OMEPRAZOLE
     Dosage: UNK (ADDITIONAL INFO: ROUTE: 065) (ADDITIONAL INFO: MOMETASONE FUROATE)
     Route: 065
  62. OMEPRAZOLE [Concomitant]
     Active Substance: OMEPRAZOLE
     Dosage: UNK (OCCLUSIVE)
     Route: 065
  63. RIFAMPIN [Concomitant]
     Active Substance: RIFAMPIN
     Indication: Product used for unknown indication
     Dosage: UNK ADDITIONAL INFO: ADDITIONAL INFO: ROUTE: 065 PKGID=UNKNOWN
     Route: 065
  64. RIFAMPIN [Concomitant]
     Active Substance: RIFAMPIN
     Indication: Product used for unknown indication
     Dosage: UNK (ADDITIONAL INFO: ROUTE: 065)
     Route: 065
  65. RIFAMPIN [Concomitant]
     Active Substance: RIFAMPIN
     Dosage: UNK (ADDITIONAL INFO: ROUTE: 065)
     Route: 065
  66. RIFAMPIN [Concomitant]
     Active Substance: RIFAMPIN
     Dosage: UNK (ADDITIONAL INFO: ROUTE: 065)
     Route: 065
  67. RIFAMPIN [Concomitant]
     Active Substance: RIFAMPIN
     Dosage: UNK (ADDITIONAL INFO: ROUTE: 065)
     Route: 065
  68. RIFAMPIN [Concomitant]
     Active Substance: RIFAMPIN
     Dosage: UNK (ADDITIONAL INFO: ROUTE: 065)
     Route: 065
  69. RIFAMPIN [Concomitant]
     Active Substance: RIFAMPIN
     Dosage: UNK (OCCLUSIVE)
     Route: 065
  70. RIFAMPIN [Concomitant]
     Active Substance: RIFAMPIN
     Dosage: UNK (ADDITIONAL INFO: ADDITIONAL INFO: ROUTE: 065)
     Route: 065
  71. ACETAMINOPHEN [Concomitant]
     Active Substance: ACETAMINOPHEN
     Indication: Product used for unknown indication
     Dosage: UNK
     Route: 065
  72. ACETAMINOPHEN [Concomitant]
     Active Substance: ACETAMINOPHEN
     Dosage: 300/50 UNK
     Route: 065
  73. POTASSIUM BICARBONATE\POTASSIUM CHLORIDE [Concomitant]
     Active Substance: POTASSIUM BICARBONATE\POTASSIUM CHLORIDE
     Indication: Product used for unknown indication
     Dosage: UNK (ADDITIONAL INFO: ROUTE: 065)
     Route: 065
  74. POTASSIUM BICARBONATE\POTASSIUM CHLORIDE [Concomitant]
     Active Substance: POTASSIUM BICARBONATE\POTASSIUM CHLORIDE
     Indication: Product used for unknown indication
     Dosage: UNK (OCCLUSIVE)
  75. POTASSIUM BICARBONATE\POTASSIUM CHLORIDE [Concomitant]
     Active Substance: POTASSIUM BICARBONATE\POTASSIUM CHLORIDE
     Dosage: UNK (OCCLUSIVE)
  76. POTASSIUM BICARBONATE\POTASSIUM CHLORIDE [Concomitant]
     Active Substance: POTASSIUM BICARBONATE\POTASSIUM CHLORIDE
     Dosage: UNK (OCCLUSIVE)
  77. POTASSIUM BICARBONATE\POTASSIUM CHLORIDE [Concomitant]
     Active Substance: POTASSIUM BICARBONATE\POTASSIUM CHLORIDE
     Dosage: UNK (OCCLUSIVE)
  78. CIPROFLOXACIN [Concomitant]
     Active Substance: CIPROFLOXACIN
     Indication: Product used for unknown indication
     Dosage: UNK (ADDITIONAL INFO: ROUTE: 065)
     Route: 065
  79. CIPROFLOXACIN [Concomitant]
     Active Substance: CIPROFLOXACIN
     Dosage: UNK (ADDITIONAL INFO: ROUTE: 065)
     Route: 065
  80. CIPROFLOXACIN [Concomitant]
     Active Substance: CIPROFLOXACIN
     Dosage: UNK (ADDITIONAL INFO: ROUTE: 065)
     Route: 065
  81. CIPROFLOXACIN [Concomitant]
     Active Substance: CIPROFLOXACIN
     Dosage: UNK (ADDITIONAL INFO: ROUTE: 065)
     Route: 065
  82. CIPROFLOXACIN [Concomitant]
     Active Substance: CIPROFLOXACIN
     Dosage: UNK (ADDITIONAL INFO: ROUTE: 065)
     Route: 065
  83. CIPROFLOXACIN [Concomitant]
     Active Substance: CIPROFLOXACIN
     Dosage: UNK (OCCLUSIVE)
  84. CIPROFLOXACIN [Concomitant]
     Active Substance: CIPROFLOXACIN
     Dosage: UNK (ADDITIONAL INFO: ROUTE: 065)
  85. CYCLIZINE [Concomitant]
     Active Substance: CYCLIZINE
     Indication: Product used for unknown indication
     Dosage: UNK, (ADDITIONAL INFO: ROUTE: 065)
     Route: 065
  86. CYCLIZINE [Concomitant]
     Active Substance: CYCLIZINE
     Dosage: UNK, (ADDITIONAL INFO: ROUTE: 065)
     Route: 065
  87. CYCLIZINE [Concomitant]
     Active Substance: CYCLIZINE
     Dosage: UNK, (ADDITIONAL INFO: ROUTE: 065)
     Route: 065
  88. CYCLIZINE [Concomitant]
     Active Substance: CYCLIZINE
     Dosage: UNK, (ADDITIONAL INFO: ROUTE: 065)
     Route: 065
  89. CYCLIZINE [Concomitant]
     Active Substance: CYCLIZINE
     Dosage: UNK, (ADDITIONAL INFO: ROUTE: 065)
     Route: 065
  90. CYCLIZINE [Concomitant]
     Active Substance: CYCLIZINE
     Dosage: UNK (OCCLUSIVE)
     Route: 065
  91. CYCLIZINE [Concomitant]
     Active Substance: CYCLIZINE
     Dosage: UNK (ADDITIONAL INFO: ROUTE: 065)
  92. GENTAMICIN [Concomitant]
     Active Substance: GENTAMICIN
     Indication: Product used for unknown indication
     Dosage: UNK (ADDITIONAL INFO: ROUTE: 065)
     Route: 065
  93. GENTAMICIN [Concomitant]
     Active Substance: GENTAMICIN
     Dosage: UNK (OCCLUSIVE)
  94. GENTAMICIN [Concomitant]
     Active Substance: GENTAMICIN
     Dosage: UNK
     Route: 016
  95. GENTAMICIN [Concomitant]
     Active Substance: GENTAMICIN
     Dosage: UNK (ADDITIONAL INFO: ROUTE: 065)
     Route: 065
  96. GENTAMICIN [Concomitant]
     Active Substance: GENTAMICIN
     Dosage: UNK (ADDITIONAL INFO: ROUTE: 065)
     Route: 065
  97. GENTAMICIN [Concomitant]
     Active Substance: GENTAMICIN
     Dosage: UNK (ADDITIONAL INFO: ROUTE: 065)
     Route: 065
  98. GENTAMICIN [Concomitant]
     Active Substance: GENTAMICIN
     Dosage: UNK (ADDITIONAL INFO: ROUTE: 065)
     Route: 065
  99. GENTAMICIN [Concomitant]
     Active Substance: GENTAMICIN
     Dosage: UNK (ADDITIONAL INFO: ROUTE: 065)
     Route: 065
  100. VANCOMYCIN [Concomitant]
     Active Substance: VANCOMYCIN
     Indication: Infection
     Dosage: UNK; ADDITIONAL INFO: ADDITIONAL INFO: ROUTE: 065
     Route: 065
  101. VANCOMYCIN [Concomitant]
     Active Substance: VANCOMYCIN
     Indication: Product used for unknown indication
     Dosage: UNK; ADDITIONAL INFO: ADDITIONAL INFO: ROUTE: 065
     Route: 065
  102. VANCOMYCIN [Concomitant]
     Active Substance: VANCOMYCIN
     Dosage: UNK; ADDITIONAL INFO: ADDITIONAL INFO: ROUTE: 065
     Route: 065
  103. VANCOMYCIN [Concomitant]
     Active Substance: VANCOMYCIN
     Dosage: UNK; ADDITIONAL INFO: ADDITIONAL INFO: ROUTE: 065
     Route: 065
  104. VANCOMYCIN [Concomitant]
     Active Substance: VANCOMYCIN
     Dosage: UNK; ADDITIONAL INFO: ADDITIONAL INFO: ROUTE: 065
     Route: 065
  105. VANCOMYCIN [Concomitant]
     Active Substance: VANCOMYCIN
     Dosage: UNK; ADDITIONAL INFO: ADDITIONAL INFO: ROUTE: 065
     Route: 065
  106. VANCOMYCIN [Concomitant]
     Active Substance: VANCOMYCIN
     Dosage: UNK (ADDITIONAL INFO: ROUTE: 065)
     Route: 065
  107. CHLORPHENIRAMINE MALEATE [Concomitant]
     Active Substance: CHLORPHENIRAMINE MALEATE
     Indication: Product used for unknown indication
     Dosage: UNK (ADDITIONAL INFO: ROUTE: 065)
     Route: 065
  108. CHLORPHENIRAMINE MALEATE [Concomitant]
     Active Substance: CHLORPHENIRAMINE MALEATE
     Dosage: UNK (OCCLUSIVE)
  109. CHLORPHENIRAMINE MALEATE [Concomitant]
     Active Substance: CHLORPHENIRAMINE MALEATE
     Dosage: UNK (ADDITIONAL INFO: ROUTE: 065)
     Route: 065
  110. CHLORPHENIRAMINE MALEATE [Concomitant]
     Active Substance: CHLORPHENIRAMINE MALEATE
     Dosage: UNK (ADDITIONAL INFO: ROUTE: 065)
     Route: 065
  111. CHLORPHENIRAMINE MALEATE [Concomitant]
     Active Substance: CHLORPHENIRAMINE MALEATE
     Dosage: UNK (ADDITIONAL INFO: ROUTE: 065)
     Route: 065
  112. CHLORPHENIRAMINE MALEATE [Concomitant]
     Active Substance: CHLORPHENIRAMINE MALEATE
     Dosage: UNK (ADDITIONAL INFO: ROUTE: 065)
     Route: 065
  113. POTASSIUM [Concomitant]
     Active Substance: POTASSIUM
     Indication: Product used for unknown indication
     Dosage: UNK
     Route: 065
  114. POTASSIUM [Concomitant]
     Active Substance: POTASSIUM
     Dosage: UNK
     Route: 065
  115. POTASSIUM [Concomitant]
     Active Substance: POTASSIUM
     Dosage: UNK
     Route: 065
  116. POTASSIUM [Concomitant]
     Active Substance: POTASSIUM
     Dosage: UNK
     Route: 065
  117. POTASSIUM [Concomitant]
     Active Substance: POTASSIUM
     Dosage: UNK
     Route: 065
  118. POTASSIUM [Concomitant]
     Active Substance: POTASSIUM
     Dosage: UNK
     Route: 065
  119. COCODAMOL [Concomitant]
     Active Substance: ACETAMINOPHEN\CODEINE PHOSPHATE
     Indication: Product used for unknown indication
     Dosage: UNK, (ADDITIONAL INFO: ROUTE: 065)
     Route: 065
  120. COCODAMOL [Concomitant]
     Active Substance: ACETAMINOPHEN\CODEINE PHOSPHATE
     Dosage: 30/500 UNK (ADDITIONAL INFO: ROUTE: 065)
     Route: 065
  121. COCODAMOL [Concomitant]
     Active Substance: ACETAMINOPHEN\CODEINE PHOSPHATE
     Dosage: UNK, (ADDITIONAL INFO: ROUTE: 065)
     Route: 065
  122. COCODAMOL [Concomitant]
     Active Substance: ACETAMINOPHEN\CODEINE PHOSPHATE
     Dosage: UNK, (ADDITIONAL INFO: ROUTE: 065)
     Route: 065
  123. COCODAMOL [Concomitant]
     Active Substance: ACETAMINOPHEN\CODEINE PHOSPHATE
     Dosage: UNK, (ADDITIONAL INFO: ROUTE: 065)
     Route: 065
  124. COCODAMOL [Concomitant]
     Active Substance: ACETAMINOPHEN\CODEINE PHOSPHATE
     Dosage: UNK (OCCLUSIVE)
     Route: 065
  125. COCODAMOL [Concomitant]
     Active Substance: ACETAMINOPHEN\CODEINE PHOSPHATE
     Dosage: UNK (OCCLUSIVE)
     Route: 065
  126. COCODAMOL [Concomitant]
     Active Substance: ACETAMINOPHEN\CODEINE PHOSPHATE
     Dosage: UNK (OCCLUSIVE)
     Route: 065
  127. COCODAMOL [Concomitant]
     Active Substance: ACETAMINOPHEN\CODEINE PHOSPHATE
     Dosage: UNK (OCCLUSIVE)
     Route: 065
  128. COCODAMOL [Concomitant]
     Active Substance: ACETAMINOPHEN\CODEINE PHOSPHATE
     Dosage: UNK (OCCLUSIVE)
     Route: 065
  129. COCODAMOL [Concomitant]
     Active Substance: ACETAMINOPHEN\CODEINE PHOSPHATE
     Dosage: UNK (OCCLUSIVE)
     Route: 065
  130. COCODAMOL [Concomitant]
     Active Substance: ACETAMINOPHEN\CODEINE PHOSPHATE
     Dosage: UNK (ADDITIONAL INFO: ADDITIONAL INFO: ROUTE: 065)
     Route: 065
  131. COCODAMOL [Concomitant]
     Active Substance: ACETAMINOPHEN\CODEINE PHOSPHATE
     Dosage: UNK (ADDITIONAL INFO: ADDITIONAL INFO: ROUTE: 065)
     Route: 065
  132. COCODAMOL [Concomitant]
     Active Substance: ACETAMINOPHEN\CODEINE PHOSPHATE
     Dosage: UNK (ADDITIONAL INFO: ADDITIONAL INFO: ROUTE: 065)
     Route: 065
  133. TRAMADOL HYDROCHLORIDE [Concomitant]
     Active Substance: TRAMADOL HYDROCHLORIDE
     Indication: Product used for unknown indication
     Dosage: UNK;  ADDITIONAL INFO: ROUTE: 065
     Route: 065
  134. TRAMADOL HYDROCHLORIDE [Concomitant]
     Active Substance: TRAMADOL HYDROCHLORIDE
     Indication: Product used for unknown indication
     Dosage: UNK;  ADDITIONAL INFO: ROUTE: 065
     Route: 065
  135. TRAMADOL HYDROCHLORIDE [Concomitant]
     Active Substance: TRAMADOL HYDROCHLORIDE
     Indication: Infection
     Dosage: UNK;  ADDITIONAL INFO: ROUTE: 065
     Route: 065
  136. TRAMADOL HYDROCHLORIDE [Concomitant]
     Active Substance: TRAMADOL HYDROCHLORIDE
     Dosage: UNK;  ADDITIONAL INFO: ROUTE: 065
     Route: 065
  137. TRAMADOL HYDROCHLORIDE [Concomitant]
     Active Substance: TRAMADOL HYDROCHLORIDE
     Dosage: UNK;  ADDITIONAL INFO: ROUTE: 065
     Route: 065
  138. TRAMADOL HYDROCHLORIDE [Concomitant]
     Active Substance: TRAMADOL HYDROCHLORIDE
     Dosage: UNK;  ADDITIONAL INFO: ROUTE: 065
     Route: 065
  139. TRAMADOL HYDROCHLORIDE [Concomitant]
     Active Substance: TRAMADOL HYDROCHLORIDE
     Dosage: UNK;  ADDITIONAL INFO: ROUTE: 065
     Route: 065
  140. TRAMADOL HYDROCHLORIDE [Concomitant]
     Active Substance: TRAMADOL HYDROCHLORIDE
     Dosage: UNK (OCCLUSIVE)
     Route: 065
  141. ENOXAPARIN SODIUM [Concomitant]
     Active Substance: ENOXAPARIN SODIUM
     Indication: Product used for unknown indication
     Dosage: UNK; ADDITIONAL INFO: ROUTE: 065
     Route: 065
  142. ENOXAPARIN SODIUM [Concomitant]
     Active Substance: ENOXAPARIN SODIUM
     Dosage: UNK
     Route: 065
  143. ENOXAPARIN SODIUM [Concomitant]
     Active Substance: ENOXAPARIN SODIUM
     Dosage: UNK
     Route: 065
  144. ASPIRIN [Concomitant]
     Active Substance: ASPIRIN
     Indication: Product used for unknown indication
     Dosage: UNK; ADDITIONAL INFO: ADDITIONAL INFO: ROUTE: 065
     Route: 065
  145. ASPIRIN [Concomitant]
     Active Substance: ASPIRIN
     Dosage: UNK (OCCLUSIVE)
  146. ASPIRIN [Concomitant]
     Active Substance: ASPIRIN
     Dosage: UNK (OCCLUSIVE)
  147. ASPIRIN [Concomitant]
     Active Substance: ASPIRIN
     Dosage: UNK, ADDITIONAL INFO: ADDITIONAL INFO: ROUTE: 065
     Route: 065
  148. ASPIRIN [Concomitant]
     Active Substance: ASPIRIN
     Dosage: UNK;ADDITIONAL INFO: ADDITIONAL INFO: ROUTE: 065
     Route: 016
  149. CODEINE PHOSPHATE [Concomitant]
     Active Substance: CODEINE PHOSPHATE
     Indication: Product used for unknown indication
     Dosage: 300/50 UNK
     Route: 065
  150. CODEINE PHOSPHATE [Concomitant]
     Active Substance: CODEINE PHOSPHATE
     Dosage: UNK
  151. ACETAMINOPHEN [Concomitant]
     Active Substance: ACETAMINOPHEN
     Indication: Product used for unknown indication
     Dosage: UNK; (ADDITIONAL INFO: ROUTE: 065)
     Route: 065
  152. ACETAMINOPHEN [Concomitant]
     Active Substance: ACETAMINOPHEN
     Indication: Product used for unknown indication
     Dosage: UNK; (ADDITIONAL INFO: ROUTE: 065)
     Route: 065
  153. ACETAMINOPHEN [Concomitant]
     Active Substance: ACETAMINOPHEN
     Dosage: UNK; (ADDITIONAL INFO: ROUTE: 065)
     Route: 065
  154. ACETAMINOPHEN [Concomitant]
     Active Substance: ACETAMINOPHEN
     Dosage: UNK; (ADDITIONAL INFO: ROUTE: 065)
     Route: 065
  155. ACETAMINOPHEN [Concomitant]
     Active Substance: ACETAMINOPHEN
     Dosage: UNK; (ADDITIONAL INFO: ROUTE: 065)
     Route: 065
  156. ACETAMINOPHEN [Concomitant]
     Active Substance: ACETAMINOPHEN
     Dosage: UNK (OCCLUSIVE)
  157. ACETAMINOPHEN [Concomitant]
     Active Substance: ACETAMINOPHEN
     Dosage: UNK
  158. ACETAMINOPHEN [Concomitant]
     Active Substance: ACETAMINOPHEN
     Dosage: UNK
  159. CODEINE [Concomitant]
     Active Substance: CODEINE
     Indication: Product used for unknown indication
     Dosage: 300/50 UNK
  160. CODEINE [Concomitant]
     Active Substance: CODEINE
     Dosage: UNK
  161. BENDROFLUMETHIAZIDE [Concomitant]
     Active Substance: BENDROFLUMETHIAZIDE
     Indication: Product used for unknown indication
     Dosage: UNK; ADDITIONAL INFO: ROUTE: 065
     Route: 065
  162. BENDROFLUMETHIAZIDE [Concomitant]
     Active Substance: BENDROFLUMETHIAZIDE
     Dosage: UNK; ADDITIONAL INFO: ROUTE: 065
     Route: 065
  163. BENDROFLUMETHIAZIDE [Concomitant]
     Active Substance: BENDROFLUMETHIAZIDE
     Dosage: UNK; ADDITIONAL INFO: ROUTE: 065
     Route: 065
  164. BENDROFLUMETHIAZIDE [Concomitant]
     Active Substance: BENDROFLUMETHIAZIDE
     Dosage: UNK; ADDITIONAL INFO: ROUTE: 065
     Route: 016
  165. BENDROFLUMETHIAZIDE [Concomitant]
     Active Substance: BENDROFLUMETHIAZIDE
     Dosage: UNK; ADDITIONAL INFO: ROUTE: 065
     Route: 065
  166. BENDROFLUMETHIAZIDE [Concomitant]
     Active Substance: BENDROFLUMETHIAZIDE
     Dosage: UNK; ADDITIONAL INFO: ROUTE: 065
     Route: 065
  167. BENDROFLUMETHIAZIDE [Concomitant]
     Active Substance: BENDROFLUMETHIAZIDE
     Dosage: UNK; ADDITIONAL INFO: ROUTE: 065
     Route: 065
  168. ACETAMINOPHEN\CAFFEINE [Concomitant]
     Active Substance: ACETAMINOPHEN\CAFFEINE
     Dosage: UNK
  169. MOMETASONE [Concomitant]
     Active Substance: MOMETASONE
     Dosage: UNK ROUTE OF ADMINISTRATION ALSO REPORTED AS UNKNOWN, (ADDITIONAL INFO: ROUTE: 065)
     Route: 016
  170. MOMETASONE [Concomitant]
     Active Substance: MOMETASONE
     Dosage: UNK; (ADDITIONAL INFO: ROUTE: 065)
     Route: 065
  171. MOMETASONE [Concomitant]
     Active Substance: MOMETASONE
     Dosage: UNK; (ADDITIONAL INFO: ROUTE: 065)
     Route: 065
  172. MOMETASONE [Concomitant]
     Active Substance: MOMETASONE
     Dosage: UNK
     Route: 065
  173. MOMETASONE [Concomitant]
     Active Substance: MOMETASONE
     Dosage: UNK
     Route: 016
  174. MOMETASONE [Concomitant]
     Active Substance: MOMETASONE
     Dosage: UNK
     Route: 065
  175. MOMETASONE [Concomitant]
     Active Substance: MOMETASONE
     Dosage: UNK
     Route: 065
  176. MOMETASONE [Concomitant]
     Active Substance: MOMETASONE
     Dosage: UNK
     Route: 065
  177. MORPHINE [Concomitant]
     Active Substance: MORPHINE
     Indication: Product used for unknown indication
     Dosage: UNK
  178. MORPHINE [Concomitant]
     Active Substance: MORPHINE
     Dosage: UNK
     Route: 065
  179. MORPHINE [Concomitant]
     Active Substance: MORPHINE
     Dosage: UNK
     Route: 065
  180. MORPHINE [Concomitant]
     Active Substance: MORPHINE
     Dosage: UNK
     Route: 065

REACTIONS (9)
  - Heart rate irregular [Recovering/Resolving]
  - Atrial fibrillation [Unknown]
  - Off label use [Unknown]
  - Blood creatine phosphokinase increased [Unknown]
  - Infection [Unknown]
  - Product used for unknown indication [Unknown]
  - Tachycardia [Recovering/Resolving]
  - Product use in unapproved indication [Unknown]
  - Disease progression [Unknown]

NARRATIVE: CASE EVENT DATE: 20130306
